FAERS Safety Report 25881892 (Version 2)
Quarter: 2025Q4

REPORT INFORMATION
  Report Type: Report from Study
  Country: US (occurrence: US)
  Receive Date: 20251005
  Receipt Date: 20251125
  Transmission Date: 20260118
  Serious: No
  Sender: ABBVIE
  Company Number: US-ABBVIE-6486280

PATIENT
  Age: 78 Year
  Sex: Female

DRUGS (2)
  1. SKYRIZI [Suspect]
     Active Substance: RISANKIZUMAB-RZAA
     Indication: Psoriasis
     Route: 058
     Dates: start: 20250926
  2. SKYRIZI [Suspect]
     Active Substance: RISANKIZUMAB-RZAA
     Route: 058
     Dates: start: 2022

REACTIONS (11)
  - Dysphagia [Unknown]
  - Gingival pain [Unknown]
  - Exposed bone in jaw [Unknown]
  - Hypoacusis [Unknown]
  - Dental discomfort [Not Recovered/Not Resolved]
  - Dental care [Unknown]
  - Tooth fracture [Unknown]
  - Gingival discomfort [Unknown]
  - Tooth disorder [Not Recovered/Not Resolved]
  - Periodontal disease [Unknown]
  - Tooth extraction [Unknown]

NARRATIVE: CASE EVENT DATE: 20250101
